FAERS Safety Report 24062750 (Version 3)
Quarter: 2024Q3

REPORT INFORMATION
  Report Type: Report from Study
  Country: CA (occurrence: CA)
  Receive Date: 20240708
  Receipt Date: 20240925
  Transmission Date: 20241017
  Serious: Yes (Hospitalization)
  Sender: ABBVIE
  Company Number: CA-ABBVIE-5813219

PATIENT
  Age: 84 Year
  Sex: Female

DRUGS (8)
  1. VENETOCLAX [Suspect]
     Active Substance: VENETOCLAX
     Indication: Acute myeloid leukaemia
     Route: 048
     Dates: start: 20240521, end: 20240613
  2. VENETOCLAX [Suspect]
     Active Substance: VENETOCLAX
     Indication: Acute myeloid leukaemia
     Route: 048
     Dates: start: 20240729, end: 20240802
  3. VENETOCLAX [Suspect]
     Active Substance: VENETOCLAX
     Indication: Acute myeloid leukaemia
     Route: 048
     Dates: start: 2024
  4. Covid-19 vaccine [Concomitant]
     Indication: COVID-19 prophylaxis
     Dosage: TIME INTERVAL: TOTAL: FOURTH DOSE, ONCE
     Route: 030
  5. Covid-19 vaccine [Concomitant]
     Indication: COVID-19 prophylaxis
     Dosage: TIME INTERVAL: TOTAL: THIRD DOSE, ONCE
     Route: 030
  6. Covid-19 vaccine [Concomitant]
     Indication: COVID-19 prophylaxis
     Dosage: TIME INTERVAL: TOTAL: FIRST DOSE, ONCE
     Route: 030
  7. Covid-19 vaccine [Concomitant]
     Indication: COVID-19 prophylaxis
     Dosage: TIME INTERVAL: TOTAL: SECOND DOSE, ONCE
     Route: 030
  8. Covid-19 vaccine [Concomitant]
     Indication: COVID-19 prophylaxis
     Dosage: TIME INTERVAL: TOTAL: FIFTH DOSE, ONCE
     Route: 030

REACTIONS (1)
  - Febrile neutropenia [Recovered/Resolved]

NARRATIVE: CASE EVENT DATE: 20240617
